FAERS Safety Report 6567715-0 (Version None)
Quarter: 2010Q1

REPORT INFORMATION
  Report Type: 
  Country: None (occurrence: None)
  Receive Date: 20100203
  Receipt Date: 20100121
  Transmission Date: 20100710
  Serious: Yes (Other)
  Sender: FDA-Public Use
  Company Number: US-PFIZER INC-2009294976

PATIENT
  Sex: Male
  Weight: 100.68 kg

DRUGS (2)
  1. GEODON [Suspect]
     Indication: BIPOLAR I DISORDER
     Dosage: 60 MG, 2X/DAY
     Dates: start: 20091021
  2. GEODON [Suspect]
     Dosage: 40 MG, 2X/DAY
     Route: 048
     Dates: start: 20091020

REACTIONS (7)
  - BEDRIDDEN [None]
  - DROOLING [None]
  - DYSPHAGIA [None]
  - FACIAL PALSY [None]
  - FEELING ABNORMAL [None]
  - NEUROLOGICAL SYMPTOM [None]
  - PSYCHOMOTOR RETARDATION [None]
